FAERS Safety Report 4550812-9 (Version None)
Quarter: 2004Q4

REPORT INFORMATION
  Report Type: 
  Country: None (occurrence: None)
  Receive Date: 20041217
  Receipt Date: 20041005
  Transmission Date: 20050328
  Serious: No
  Sender: FDA-Public Use
  Company Number: 2004-BP-09303BP(0)

PATIENT
  Age: 89 Year
  Sex: Female

DRUGS (9)
  1. SPIRIVA [Suspect]
     Dosage: 18 MCG (18 MCG), IH
     Route: 055
     Dates: start: 20040701
  2. BEXTRA [Suspect]
  3. LIPITOR [Concomitant]
  4. ZOLOFT [Concomitant]
  5. ACETYLSALICYLIC ACID SRT [Concomitant]
  6. ATENOLOL [Concomitant]
  7. NORVASC [Concomitant]
  8. PROSCAR [Concomitant]
  9. ADVAIR (SERETIDE MITE) [Concomitant]

REACTIONS (1)
  - ALOPECIA [None]
